FAERS Safety Report 7125831-9 (Version None)
Quarter: 2010Q4

REPORT INFORMATION
  Report Type: 
  Country: None (occurrence: None)
  Receive Date: 20101129
  Receipt Date: 20101116
  Transmission Date: 20110411
  Serious: Yes (Hospitalization)
  Sender: FDA-Public Use
  Company Number: IT-ASTRAZENECA-2010SE54708

PATIENT
  Age: 36 Year
  Sex: Female

DRUGS (5)
  1. SEROQUEL XR [Suspect]
     Indication: ACCIDENTAL EXPOSURE
     Route: 048
     Dates: start: 20101111, end: 20101111
  2. TICLOPIDINE HCL [Suspect]
     Indication: ACCIDENTAL EXPOSURE
     Route: 055
  3. NORVASC [Suspect]
     Indication: ACCIDENTAL EXPOSURE
     Route: 055
     Dates: start: 20101111, end: 20101111
  4. TAVOR [Suspect]
     Indication: ACCIDENTAL EXPOSURE
     Route: 055
  5. TACHIPIRINA [Concomitant]
     Indication: NASOPHARYNGITIS
     Route: 048
     Dates: start: 20101111, end: 20101111

REACTIONS (3)
  - ACCIDENTAL EXPOSURE [None]
  - OEDEMA PERIPHERAL [None]
  - URTICARIA [None]
